FAERS Safety Report 7930784-7 (Version None)
Quarter: 2011Q4

REPORT INFORMATION
  Report Type: 
  Country: None (occurrence: None)
  Receive Date: 20111117
  Receipt Date: 20111117
  Transmission Date: 20120403
  Serious: Yes (Life-Threatening, Hospitalization)
  Sender: FDA-Public Use
  Company Number: None

PATIENT
  Age: 72 Year
  Sex: Male
  Weight: 79.6 kg

DRUGS (4)
  1. PROCHLORPERAZINE MALEATE [Concomitant]
  2. PREDNISONE TAB [Concomitant]
  3. DOCUSATE NA [Concomitant]
  4. CABAZITAXEL 10MG/ML (DOSE 20MG/M2) SANOFI AVENTIS [Suspect]
     Indication: PROSTATE CANCER
     Dosage: 40MG Q3WEEKS IV
     Route: 042
     Dates: end: 20111027

REACTIONS (7)
  - PNEUMONIA [None]
  - RENAL FAILURE ACUTE [None]
  - ELECTROCARDIOGRAM T WAVE INVERSION [None]
  - URINARY TRACT INFECTION [None]
  - TROPONIN INCREASED [None]
  - PULMONARY EMBOLISM [None]
  - SEPSIS [None]
